FAERS Safety Report 16958625 (Version 2)
Quarter: 2020Q4

REPORT INFORMATION
  Report Type: Spontaneous
  Country: US (occurrence: US)
  Receive Date: 20191024
  Receipt Date: 20201028
  Transmission Date: 20210113
  Serious: No
  Sender: FDA-Public Use
  Company Number: US-ABBVIE-19P-163-2902494-00

PATIENT
  Sex: Male

DRUGS (1)
  1. SKYRIZI [Suspect]
     Active Substance: RISANKIZUMAB-RZAA
     Indication: PSORIASIS
     Dosage: DROPPED DOSE TO ONE THIRD EACH TIME OVER THREE WEEKS
     Route: 058
     Dates: start: 2019

REACTIONS (9)
  - Asthma [Recovering/Resolving]
  - Sunburn [Unknown]
  - Skin plaque [Recovering/Resolving]
  - Eczema [Recovering/Resolving]
  - Therapeutic product effect delayed [Unknown]
  - Seasonal allergy [Unknown]
  - Psoriasis [Recovering/Resolving]
  - Skin burning sensation [Recovering/Resolving]
  - Photosensitivity reaction [Unknown]

NARRATIVE: CASE EVENT DATE: 2019
